FAERS Safety Report 16700670 (Version 1)
Quarter: 2019Q3

REPORT INFORMATION
  Report Type: Report from Study
  Country: US (occurrence: US)
  Receive Date: 20190814
  Receipt Date: 20190814
  Transmission Date: 20191004
  Serious: Yes (Hospitalization, Other)
  Sender: FDA-Public Use
  Company Number: US-ROCHE-2372210

PATIENT
  Age: 59 Year
  Sex: Female
  Weight: 53.12 kg

DRUGS (4)
  1. OCREVUS [Suspect]
     Active Substance: OCRELIZUMAB
     Indication: PRIMARY PROGRESSIVE MULTIPLE SCLEROSIS
     Dosage: ONGOING: YES
     Route: 042
  2. PROVIGIL [Concomitant]
     Active Substance: MODAFINIL
     Indication: FATIGUE
     Dosage: ONGOING:YES
     Route: 051
  3. TIZANIDINE. [Concomitant]
     Active Substance: TIZANIDINE
     Indication: MUSCLE SPASMS
     Dosage: YES
     Route: 051
  4. BACLOFEN. [Concomitant]
     Active Substance: BACLOFEN
     Indication: MUSCLE SPASMS
     Dosage: ONGOING: YES
     Route: 051

REACTIONS (5)
  - Bedridden [Not Recovered/Not Resolved]
  - Asthenia [Unknown]
  - Urinary tract infection [Unknown]
  - Pneumonia aspiration [Not Recovered/Not Resolved]
  - Septic shock [Unknown]

NARRATIVE: CASE EVENT DATE: 201807
